FAERS Safety Report 8299630-9 (Version None)
Quarter: 2012Q2

REPORT INFORMATION
  Report Type: 
  Country: None (occurrence: None)
  Receive Date: 20120419
  Receipt Date: 20120411
  Transmission Date: 20120825
  Serious: Yes (Other)
  Sender: FDA-Public Use
  Company Number: TR-GLAXOSMITHKLINE-B0795126A

PATIENT
  Age: 29 Year
  Sex: Female

DRUGS (1)
  1. ZYBAN [Suspect]
     Indication: EX-TOBACCO USER
     Dosage: 150MG PER DAY
     Route: 048
     Dates: start: 20120301, end: 20120301

REACTIONS (4)
  - TACHYCARDIA [None]
  - ANXIETY [None]
  - INSOMNIA [None]
  - ABNORMAL BEHAVIOUR [None]
